FAERS Safety Report 4964237-5 (Version None)
Quarter: 2006Q1

REPORT INFORMATION
  Report Type: 
  Country: None (occurrence: None)
  Receive Date: 20060331
  Receipt Date: 20060317
  Transmission Date: 20060701
  Serious: Yes (Death)
  Sender: FDA-Public Use
  Company Number: US200603005052

PATIENT
  Age: 18 Year
  Sex: Male

DRUGS (2)
  1. STRATTERA [Suspect]
  2. ZOLOFT [Concomitant]

REACTIONS (4)
  - COMPLETED SUICIDE [None]
  - INJURY ASPHYXIATION [None]
  - INTENTIONAL SELF-INJURY [None]
  - SKIN LACERATION [None]
